FAERS Safety Report 21890761 (Version 1)
Quarter: 2023Q1

REPORT INFORMATION
  Report Type: Spontaneous
  Country: US (occurrence: None)
  Receive Date: 20230119
  Receipt Date: 20230119
  Transmission Date: 20230418
  Serious: No
  Sender: FDA-Public Use
  Company Number: None

PATIENT
  Age: 70 Year
  Sex: Female
  Weight: 117.93 kg

DRUGS (18)
  1. IMATINIB [Suspect]
     Active Substance: IMATINIB
     Indication: Chronic myeloid leukaemia
     Dosage: FREQUENCY : DAILY;?
     Route: 048
  2. ASPIRIN LOW [Concomitant]
  3. AZITHROMYCIN [Concomitant]
     Active Substance: AZITHROMYCIN
  4. BISOPROLOL [Concomitant]
     Active Substance: BISOPROLOL
  5. FERROUS SULFATE [Concomitant]
  6. FORTAMET [Concomitant]
  7. HYDROCHLOROTHIAZIDE [Concomitant]
  8. NORCO [Concomitant]
  9. LEVOTHYROXINE [Concomitant]
  10. LISINOPRIL [Concomitant]
  11. METFORMIN [Concomitant]
  12. PAXLOVID [Concomitant]
     Active Substance: NIRMATRELVIR\RITONAVIR
  13. VITAMIN B12 [Concomitant]
  14. VITAMIN C [Concomitant]
  15. VITAMIN D3 [Concomitant]
  16. VOLTAREN [Concomitant]
  17. XANAX [Concomitant]
  18. ZOCOR [Concomitant]

REACTIONS (1)
  - COVID-19 [None]
